FAERS Safety Report 15983924 (Version 1)
Quarter: 2019Q1

REPORT INFORMATION
  Report Type: Spontaneous
  Country: US (occurrence: US)
  Receive Date: 20190219
  Receipt Date: 20190219
  Transmission Date: 20190418
  Serious: Yes (Hospitalization, Disabling)
  Sender: FDA-Public Use
  Company Number: None

PATIENT
  Age: 28 Year
  Sex: Female
  Weight: 112.5 kg

DRUGS (2)
  1. ATOMOXETINE HCL 40 MG CAPSULE [Suspect]
     Active Substance: ATOMOXETINE HYDROCHLORIDE
     Indication: ATTENTION DEFICIT/HYPERACTIVITY DISORDER
     Dosage: ?          QUANTITY:1 CAPSULE(S);?
     Route: 048
     Dates: start: 20190124, end: 20190215
  2. ATOMOXETINE HCL 40 MG CAPSULE [Suspect]
     Active Substance: ATOMOXETINE HYDROCHLORIDE
     Indication: DEPRESSION
     Dosage: ?          QUANTITY:1 CAPSULE(S);?
     Route: 048
     Dates: start: 20190124, end: 20190215

REACTIONS (8)
  - Dizziness [None]
  - Flank pain [None]
  - Dry skin [None]
  - Chromaturia [None]
  - Back pain [None]
  - Nausea [None]
  - Abdominal pain upper [None]
  - Liver disorder [None]

NARRATIVE: CASE EVENT DATE: 20190216
